FAERS Safety Report 9233727 (Version 1)
Quarter: 2013Q2

REPORT INFORMATION
  Report Type: Spontaneous
  Country: US (occurrence: US)
  Receive Date: 20130416
  Receipt Date: 20130416
  Transmission Date: 20140414
  Serious: No
  Sender: FDA-Public Use
  Company Number: US-BANPHARM-20130974

PATIENT
  Age: 72 Year
  Sex: Male
  Weight: 86.18 kg

DRUGS (1)
  1. ALEVE LIQUID GELS 220MG [Suspect]
     Indication: BACK PAIN
     Dosage: 2 DF, QD,
     Route: 048
     Dates: start: 20120414, end: 20120508

REACTIONS (2)
  - Drug ineffective [Unknown]
  - Incorrect drug administration duration [Unknown]
